FAERS Safety Report 4864412-4 (Version None)
Quarter: 2005Q4

REPORT INFORMATION
  Report Type: 
  Country: None (occurrence: None)
  Receive Date: 20051221
  Receipt Date: 20051221
  Transmission Date: 20060501
  Serious: No
  Sender: FDA-Public Use
  Company Number: None

PATIENT
  Age: 13 Year
  Sex: Male

DRUGS (5)
  1. QUETIAPINE [Suspect]
     Dosage: 500MG DAILY PO
     Route: 048
  2. PROPRANOLOL [Concomitant]
  3. DIVALPROEX SODIUM [Concomitant]
  4. TRAZODONE [Concomitant]
  5. TIAGABINE HCL [Concomitant]

REACTIONS (4)
  - FALL [None]
  - GAIT DISTURBANCE [None]
  - MUSCULAR WEAKNESS [None]
  - POSTURE ABNORMAL [None]
